FAERS Safety Report 4533443-6 (Version None)
Quarter: 2004Q4

REPORT INFORMATION
  Report Type: 
  Country: None (occurrence: None)
  Receive Date: 20041221
  Receipt Date: 20041213
  Transmission Date: 20050328
  Serious: Yes (Other)
  Sender: FDA-Public Use
  Company Number: PHFR2004GB04563

PATIENT
  Sex: Male

DRUGS (6)
  1. FLUVASTATIN SODIUM [Suspect]
     Dosage: 40MG/DAY
     Route: 048
  2. PRAVASTATIN [Suspect]
     Dosage: 10MG/DAY
     Route: 048
  3. SIMVASTATIN [Suspect]
     Dosage: 10MG/DAY
     Route: 048
  4. CO-PROXAMOL [Concomitant]
     Dosage: PRN
     Route: 065
  5. RANITIDINE [Concomitant]
     Dosage: UNK, CONT
     Route: 065
     Dates: start: 20040701
  6. TRAMADOL HCL [Concomitant]
     Dosage: UNK, UNK
     Route: 065
     Dates: start: 20040401

REACTIONS (2)
  - BURSITIS [None]
  - CONTUSION [None]
